FAERS Safety Report 8069569-2 (Version None)
Quarter: 2012Q1

REPORT INFORMATION
  Report Type: 
  Country: None (occurrence: None)
  Receive Date: 20120125
  Receipt Date: 20120117
  Transmission Date: 20120608
  Serious: Yes (Disabling)
  Sender: FDA-Public Use
  Company Number: CHPA2012GB001378

PATIENT
  Age: 11 Year
  Sex: Female
  Weight: 48 kg

DRUGS (2)
  1. SCOPOLAMINE [Suspect]
     Indication: NAUSEA
     Dosage: 1 DF, UNK
     Route: 062
     Dates: start: 20111222, end: 20111223
  2. ACETAMINOPHEN [Concomitant]
     Indication: HEADACHE
     Dosage: 500 MG, PRN
     Route: 048

REACTIONS (7)
  - HALLUCINATION [None]
  - NIGHTMARE [None]
  - DIPLOPIA [None]
  - NERVOUSNESS [None]
  - OFF LABEL USE [None]
  - INCORRECT DOSE ADMINISTERED [None]
  - HALLUCINATION, AUDITORY [None]
